FAERS Safety Report 7767513-6 (Version None)
Quarter: 2011Q3

REPORT INFORMATION
  Report Type: 
  Country: None (occurrence: None)
  Receive Date: 20110922
  Receipt Date: 20110914
  Transmission Date: 20111222
  Serious: Yes (Death, Hospitalization)
  Sender: FDA-Public Use
  Company Number: JP-JNJFOC-20091007742

PATIENT
  Sex: Female
  Weight: 71 kg

DRUGS (16)
  1. ONEALFA [Concomitant]
     Route: 048
  2. NEUROVITAN [Concomitant]
     Indication: PROPHYLAXIS
     Route: 048
     Dates: start: 20090624, end: 20090826
  3. SULFAMETHOXAZOLE AND TRIMETHOPRIM [Concomitant]
     Route: 048
  4. ZYPREXA [Concomitant]
     Route: 048
     Dates: start: 20090729
  5. MAGMITT [Concomitant]
     Route: 048
  6. DEPAS [Concomitant]
     Indication: PROPHYLAXIS
     Route: 048
  7. DOXORUBICIN HCL [Suspect]
     Indication: OVARIAN CANCER RECURRENT
     Dosage: CYCLE 1
     Route: 042
     Dates: start: 20090624, end: 20090624
  8. PREDNISOLONE [Concomitant]
     Route: 048
     Dates: start: 20050209
  9. RIKKUNSHI-TO [Concomitant]
     Route: 048
     Dates: start: 20090819
  10. LENDORMIN [Concomitant]
     Indication: PROPHYLAXIS
     Route: 048
  11. RABEPRAZOLE SODIUM [Concomitant]
     Route: 048
     Dates: start: 20090927
  12. DOXORUBICIN HCL [Suspect]
     Dosage: CYCLE 2
     Route: 042
     Dates: start: 20090723, end: 20090723
  13. DOXORUBICIN HCL [Suspect]
     Dosage: CYCLE 3
     Route: 042
     Dates: start: 20090820, end: 20090820
  14. PREDNISOLONE [Concomitant]
     Route: 048
     Dates: start: 20090904, end: 20090910
  15. FAMOTIDINE [Concomitant]
     Route: 048
     Dates: end: 20090825
  16. ALLEGRA [Concomitant]
     Route: 048
     Dates: start: 20090805, end: 20091022

REACTIONS (3)
  - OVARIAN CANCER RECURRENT [None]
  - EPIDERMOLYSIS [None]
  - PALMAR-PLANTAR ERYTHRODYSAESTHESIA SYNDROME [None]
